FAERS Safety Report 5918305-1 (Version None)
Quarter: 2008Q4

REPORT INFORMATION
  Report Type: 
  Country: None (occurrence: None)
  Receive Date: 20081010
  Receipt Date: 20080924
  Transmission Date: 20090506
  Serious: Yes (Death)
  Sender: FDA-Public Use
  Company Number: DSA_62333_2008

PATIENT
  Sex: Male

DRUGS (3)
  1. MYSOLINE [Suspect]
     Indication: PARKINSON'S DISEASE
     Dosage: 25 MG, QD
     Dates: start: 20080501
  2. MYSOLINE [Suspect]
     Indication: PARKINSON'S DISEASE
     Dosage: 25 MG, QD
     Dates: start: 20080501
  3. COREG [Concomitant]

REACTIONS (2)
  - COMPLETED SUICIDE [None]
  - HOMICIDE [None]
